FAERS Safety Report 14667412 (Version 1)
Quarter: 2018Q1

REPORT INFORMATION
  Report Type: Spontaneous
  Country: IT (occurrence: IT)
  Receive Date: 20180322
  Receipt Date: 20180322
  Transmission Date: 20180509
  Serious: Yes (Other)
  Sender: FDA-Public Use
  Company Number: IT-CIPLA LTD.-2018IT08556

PATIENT

DRUGS (2)
  1. TOPIRAMATE. [Suspect]
     Active Substance: TOPIRAMATE
     Indication: MIGRAINE
     Dosage: 2 DF, PER DAY
     Route: 048
     Dates: start: 20171005, end: 20180105
  2. TACHIFENE [Concomitant]
     Indication: PRODUCT USED FOR UNKNOWN INDICATION
     Dosage: UNK
     Route: 065

REACTIONS (6)
  - Photophobia [Unknown]
  - Vomiting [Unknown]
  - Dyspepsia [Unknown]
  - Vertigo [Unknown]
  - Hallucination [Unknown]
  - Tremor [Unknown]

NARRATIVE: CASE EVENT DATE: 20180105
